FAERS Safety Report 13756936 (Version 3)
Quarter: 2018Q1

REPORT INFORMATION
  Report Type: Spontaneous
  Country: JP (occurrence: JP)
  Receive Date: 20170714
  Receipt Date: 20180214
  Transmission Date: 20180508
  Serious: Yes (Hospitalization, Other)
  Sender: FDA-Public Use
  Company Number: JP-GILEAD-2017-0269490

PATIENT
  Age: 68 Year
  Sex: Male

DRUGS (5)
  1. SOVALDI [Suspect]
     Active Substance: SOFOSBUVIR
     Indication: CHRONIC HEPATITIS C
     Dosage: UNK
     Route: 048
     Dates: start: 20151127, end: 20160218
  2. RIBAVIRIN. [Concomitant]
     Active Substance: RIBAVIRIN
     Indication: CHRONIC HEPATITIS C
  3. MENATETRENONE [Concomitant]
     Active Substance: MENATETRENONE
     Indication: VITAMIN K
     Dosage: 45 MG, UNK
  4. HEPAACT [Concomitant]
     Indication: PROPHYLAXIS
     Dosage: 13.5 G, UNK
  5. URSODEOXYCHOLIC ACID [Concomitant]
     Active Substance: URSODIOL
     Indication: HEPATIC CIRRHOSIS
     Dosage: 600 MG, UNK

REACTIONS (3)
  - Hepatocellular carcinoma [Not Recovered/Not Resolved]
  - Metastases to bone [Unknown]
  - Pain [Unknown]

NARRATIVE: CASE EVENT DATE: 20160318
